FAERS Safety Report 12349827 (Version 1)
Quarter: 2016Q2

REPORT INFORMATION
  Report Type: Spontaneous
  Country: BE (occurrence: BE)
  Receive Date: 20160510
  Receipt Date: 20160510
  Transmission Date: 20160815
  Serious: Yes (Hospitalization)
  Sender: FDA-Public Use
  Company Number: BE-ACCORD-040209

PATIENT
  Age: 60 Year
  Sex: Female
  Weight: 77 kg

DRUGS (8)
  1. LASIX [Concomitant]
     Active Substance: FUROSEMIDE
  2. CISPLATIN. [Suspect]
     Active Substance: CISPLATIN
     Indication: NON-SMALL CELL LUNG CANCER
     Route: 065
     Dates: start: 20151201, end: 20160205
  3. PEMETREXED [Suspect]
     Active Substance: PEMETREXED
     Indication: NON-SMALL CELL LUNG CANCER
     Dates: start: 20151201, end: 20160205
  4. FRAXODI [Concomitant]
     Active Substance: NADROPARIN CALCIUM
  5. MEDROL [Concomitant]
     Active Substance: METHYLPREDNISOLONE
     Dates: start: 20151119
  6. XALKORI [Suspect]
     Active Substance: CRIZOTINIB
     Indication: NON-SMALL CELL LUNG CANCER
     Dosage: CYCLIC
     Route: 048
     Dates: start: 20151201, end: 20160115
  7. PANTOMED [Concomitant]
     Active Substance: DEXPANTHENOL
  8. FOLAVIT [Concomitant]

REACTIONS (5)
  - Product use issue [Unknown]
  - Drug-induced liver injury [Recovered/Resolved]
  - Subclavian vein thrombosis [Unknown]
  - Axillary vein thrombosis [Unknown]
  - Urosepsis [Recovering/Resolving]

NARRATIVE: CASE EVENT DATE: 20151201
